FAERS Safety Report 14832987 (Version 1)
Quarter: 2018Q2

REPORT INFORMATION
  Report Type: Spontaneous
  Country: US (occurrence: US)
  Receive Date: 20180501
  Receipt Date: 20180501
  Transmission Date: 20180711
  Serious: No
  Sender: FDA-Public Use
  Company Number: US-STRONGBRIDGE BIOPHARMA-2017-STR-000169

PATIENT
  Age: 35 Year
  Sex: Male

DRUGS (2)
  1. KEVEYIS [Suspect]
     Active Substance: DICHLORPHENAMIDE
     Indication: PRODUCT USED FOR UNKNOWN INDICATION
     Dosage: UNK
     Route: 048
     Dates: start: 20170704
  2. KEVEYIS [Suspect]
     Active Substance: DICHLORPHENAMIDE
     Dosage: UNK
     Route: 048
     Dates: start: 20170730

REACTIONS (3)
  - Paraesthesia [Not Recovered/Not Resolved]
  - Paraesthesia [Recovered/Resolved]
  - Dysmetropsia [Recovered/Resolved]

NARRATIVE: CASE EVENT DATE: 20170704
